FAERS Safety Report 20908604 (Version 1)
Quarter: 2022Q2

REPORT INFORMATION
  Report Type: Spontaneous
  Country: SE (occurrence: SE)
  Receive Date: 20220603
  Receipt Date: 20220603
  Transmission Date: 20220721
  Serious: Yes (Hospitalization)
  Sender: FDA-Public Use
  Company Number: None

PATIENT
  Age: 63 Year
  Sex: Male

DRUGS (7)
  1. COLCHICINE [Suspect]
     Active Substance: COLCHICINE
     Indication: Pericardial effusion
     Dosage: THERAPY DURATION : 1 MONTHS
     Route: 065
     Dates: start: 202203, end: 202204
  2. Furix [Concomitant]
     Dosage: 1X1
     Dates: end: 202204
  3. KALIUMKLORID [Concomitant]
     Dosage: 750 MG, 1X1
     Dates: end: 202204
  4. TICAGRELOR [Concomitant]
     Active Substance: TICAGRELOR
     Dosage: 1X2
  5. PANTOPRAZOLE [Concomitant]
     Active Substance: PANTOPRAZOLE
     Dosage: 40 MG 1X1
  6. ROSUVASTATIN [Concomitant]
     Active Substance: ROSUVASTATIN
     Dosage: 40 MG 1X1
     Dates: end: 202204
  7. ASPIRIN [Concomitant]
     Active Substance: ASPIRIN
     Dosage: 1X1

REACTIONS (6)
  - Transaminases increased [Not Recovered/Not Resolved]
  - Throat irritation [Recovering/Resolving]
  - Vomiting [Recovering/Resolving]
  - Sensation of foreign body [Recovering/Resolving]
  - Diarrhoea [Recovering/Resolving]
  - Prerenal failure [Recovering/Resolving]

NARRATIVE: CASE EVENT DATE: 20220101
